FAERS Safety Report 20623528 (Version 1)
Quarter: 2022Q1

REPORT INFORMATION
  Report Type: Spontaneous
  Country: DE (occurrence: DE)
  Receive Date: 20220322
  Receipt Date: 20220322
  Transmission Date: 20220424
  Serious: Yes (Hospitalization)
  Sender: FDA-Public Use
  Company Number: DE-ABBVIE-22K-062-4325679-00

PATIENT
  Age: 13 Year
  Sex: Female
  Weight: 67 kg

DRUGS (3)
  1. VALPROATE SODIUM [Suspect]
     Active Substance: VALPROATE SODIUM
     Indication: Suicidal ideation
     Dosage: 3-5 TABLET
     Route: 048
     Dates: start: 20200215
  2. IBUPROFEN [Suspect]
     Active Substance: IBUPROFEN
     Indication: Suicidal ideation
     Dosage: 600 MG MILLGRAM(S) EVERY 5 TOTAL
     Route: 048
     Dates: start: 20200215
  3. IBUPROFEN [Suspect]
     Active Substance: IBUPROFEN
     Dosage: 200 MG MILLGRAM(S) EVERY 2 TOTAL
     Route: 048
     Dates: start: 20200215

REACTIONS (1)
  - Intentional overdose [Unknown]

NARRATIVE: CASE EVENT DATE: 20200215
